FAERS Safety Report 24031617 (Version 1)
Quarter: 2024Q2

REPORT INFORMATION
  Report Type: Spontaneous
  Country: US (occurrence: US)
  Receive Date: 20240629
  Receipt Date: 20240629
  Transmission Date: 20240716
  Serious: Yes (Life-Threatening, Hospitalization)
  Sender: FDA-Public Use
  Company Number: US-AMGEN-USASP2024123999

PATIENT
  Age: 81 Year
  Sex: Male

DRUGS (1)
  1. PREDNISONE [Suspect]
     Active Substance: PREDNISONE
     Indication: Sarcoidosis
     Dosage: 20 MILLIGRAM
     Route: 065

REACTIONS (7)
  - Arthritis bacterial [Unknown]
  - Acute respiratory failure [Unknown]
  - Pulmonary nocardiosis [Unknown]
  - Nocardiosis [Unknown]
  - Cerebral nocardiosis [Unknown]
  - Cellulitis [Unknown]
  - Unevaluable event [Unknown]
